FAERS Safety Report 11741371 (Version 3)
Quarter: 2016Q2

REPORT INFORMATION
  Report Type: Report from Study
  Country: US (occurrence: US)
  Receive Date: 20151116
  Receipt Date: 20160415
  Transmission Date: 20160815
  Serious: Yes (Other)
  Sender: FDA-Public Use
  Company Number: US-AMGEN-USASL2015120191

PATIENT
  Age: 58 Year
  Sex: Male

DRUGS (1)
  1. ENBREL [Suspect]
     Active Substance: ETANERCEPT
     Indication: PSORIATIC ARTHROPATHY
     Dosage: UNK
     Route: 065
     Dates: start: 20001201, end: 201511

REACTIONS (12)
  - Inflammation [Unknown]
  - Hypoaesthesia [Recovering/Resolving]
  - Myocardial necrosis marker increased [Recovering/Resolving]
  - Arthropathy [Unknown]
  - Impaired healing [Recovering/Resolving]
  - Neuralgia [Unknown]
  - Skin ulcer [Unknown]
  - Fatigue [Unknown]
  - Photosensitivity reaction [Unknown]
  - Contusion [Unknown]
  - Myalgia [Unknown]
  - Pain [Unknown]
